FAERS Safety Report 25885211 (Version 2)
Quarter: 2025Q4

REPORT INFORMATION
  Report Type: Spontaneous
  Country: US (occurrence: US)
  Receive Date: 20251006
  Receipt Date: 20251009
  Transmission Date: 20260118
  Serious: No
  Sender: SANOFI AVENTIS
  Company Number: US-SA-2025SA296638

PATIENT
  Age: 55 Year
  Sex: Female

DRUGS (1)
  1. KEVZARA [Suspect]
     Active Substance: SARILUMAB
     Indication: Rheumatoid arthritis
     Dosage: 200 MG, QOW
     Route: 058
     Dates: start: 202509

REACTIONS (5)
  - Arthralgia [Unknown]
  - Pain [Unknown]
  - Gait inability [Unknown]
  - Impaired quality of life [Unknown]
  - Malaise [Unknown]

NARRATIVE: CASE EVENT DATE: 20250101
